FAERS Safety Report 5484720-6 (Version None)
Quarter: 2007Q4

REPORT INFORMATION
  Report Type: 
  Country: None (occurrence: None)
  Receive Date: 20071012
  Receipt Date: 20071001
  Transmission Date: 20080405
  Serious: Yes (Death)
  Sender: FDA-Public Use
  Company Number: US-PFIZER INC-2007037438

PATIENT
  Sex: Male
  Weight: 72.6 kg

DRUGS (2)
  1. CELEBREX [Suspect]
     Indication: PAIN
     Route: 048
     Dates: start: 20010625, end: 20040303
  2. CELEBREX [Suspect]
     Indication: ARTHRITIS

REACTIONS (2)
  - ANXIETY [None]
  - MYOCARDIAL INFARCTION [None]
